FAERS Safety Report 20677977 (Version 1)
Quarter: 2022Q2

REPORT INFORMATION
  Report Type: Spontaneous
  Country: US (occurrence: US)
  Receive Date: 20220406
  Receipt Date: 20220406
  Transmission Date: 20220721
  Serious: Yes (Other)
  Sender: FDA-Public Use
  Company Number: US-Accord-247163

PATIENT
  Age: 42 Year
  Sex: Female
  Weight: 68 kg

DRUGS (2)
  1. DOCETAXEL [Suspect]
     Active Substance: DOCETAXEL
     Indication: Breast cancer female
     Dosage: DOSE: 131 MG (75 MG/M2)?DILUENT: NORMAL SALINE (0.9 %?SODIUM CHLORIDE)
     Dates: start: 20201109, end: 20210225
  2. CARBOPLATIN [Suspect]
     Active Substance: CARBOPLATIN
     Indication: Breast cancer female
     Dosage: DOSE: 900 MG (6 TARGET AUC)?DILUENT: NORMAL SALINE
     Dates: start: 20201109, end: 20210225

REACTIONS (3)
  - Agranulocytosis [Unknown]
  - Eye injury [Unknown]
  - Anaemia [Unknown]
